FAERS Safety Report 11534137 (Version 2)
Quarter: 2015Q4

REPORT INFORMATION
  Report Type: Not Available
  Country: IT (occurrence: IT)
  Receive Date: 20150922
  Receipt Date: 20151001
  Transmission Date: 20160304
  Serious: Yes (Other)
  Sender: FDA-Public Use
  Company Number: IT-BEH-2015053890

PATIENT
  Age: 1 Year
  Sex: Male
  Weight: 13 kg

DRUGS (4)
  1. MEDROL [Concomitant]
     Active Substance: METHYLPREDNISOLONE
     Route: 048
     Dates: start: 20150824, end: 20150824
  2. RANIDIL SYRUP [Concomitant]
     Route: 048
     Dates: start: 20150820, end: 20150903
  3. PRIVIGEN [Suspect]
     Active Substance: HUMAN IMMUNOGLOBULIN G
     Indication: KAWASAKI^S DISEASE
     Dosage: PATIENT DID THE 1ST CYCLE OF PRIVIGEN ON 20-AUG-2015 AND THE 2ND CYCLE ON 24-AUG-2015
     Route: 042
     Dates: start: 20150820, end: 20150824
  4. ASPIRINETTA [Concomitant]
     Active Substance: ASPIRIN
     Route: 048
     Dates: start: 20150820, end: 20150826

REACTIONS (3)
  - Hyperhidrosis [Recovered/Resolved]
  - Hypothermia [Recovered/Resolved]
  - Thrombocytopenia [Recovered/Resolved]

NARRATIVE: CASE EVENT DATE: 20150824
